FAERS Safety Report 5453976-8 (Version None)
Quarter: 2007Q3

REPORT INFORMATION
  Report Type: 
  Country: None (occurrence: None)
  Receive Date: 20070917
  Receipt Date: 20070315
  Transmission Date: 20080115
  Serious: No
  Sender: FDA-Public Use
  Company Number: US-ASTRAZENECA-2004UW16301

PATIENT
  Age: 58 Year
  Sex: Female
  Weight: 65.9 kg

DRUGS (12)
  1. SEROQUEL [Suspect]
     Indication: ANXIETY DISORDER
     Route: 048
     Dates: start: 20030601
  2. SEROQUEL [Suspect]
     Indication: SLEEP DISORDER
     Route: 048
     Dates: start: 20030601
  3. SEROQUEL [Suspect]
     Indication: BIPOLAR I DISORDER
     Route: 048
     Dates: start: 20030601
  4. SEROQUEL [Suspect]
     Route: 048
     Dates: start: 20031001
  5. SEROQUEL [Suspect]
     Route: 048
     Dates: start: 20031001
  6. SEROQUEL [Suspect]
     Route: 048
     Dates: start: 20031001
  7. SEROQUEL [Suspect]
     Route: 048
     Dates: start: 20040101, end: 20040301
  8. SEROQUEL [Suspect]
     Route: 048
     Dates: start: 20040101, end: 20040301
  9. SEROQUEL [Suspect]
     Route: 048
     Dates: start: 20040101, end: 20040301
  10. PAXIL [Concomitant]
     Indication: DEPRESSION
  11. ATIVAN [Concomitant]
  12. COGENTIN [Concomitant]

REACTIONS (10)
  - CATARACT [None]
  - EYE BURNS [None]
  - EYE DISCHARGE [None]
  - EYE DISORDER [None]
  - EYE PAIN [None]
  - EYE PRURITUS [None]
  - NIGHT BLINDNESS [None]
  - PSYCHOMOTOR HYPERACTIVITY [None]
  - SOMNOLENCE [None]
  - WEIGHT DECREASED [None]
